FAERS Safety Report 8565383-X (Version None)
Quarter: 2012Q3

REPORT INFORMATION
  Report Type: 
  Country: None (occurrence: None)
  Receive Date: 20120803
  Receipt Date: 20120731
  Transmission Date: 20120928
  Serious: Yes (Other)
  Sender: FDA-Public Use
  Company Number: US-FRI-1000022729

PATIENT
  Sex: Male

DRUGS (7)
  1. VIIBRYD [Suspect]
     Indication: ANXIETY
     Dosage: 10 MG
     Route: 048
     Dates: start: 20110701, end: 20110101
  2. VIIBRYD [Suspect]
     Dosage: 10 MG
     Dates: start: 20110805, end: 20110805
  3. VIIBRYD [Suspect]
     Dosage: 20 MG
     Dates: start: 20110804, end: 20110804
  4. AMBIEN [Concomitant]
  5. VIIBRYD [Suspect]
     Indication: DEPRESSION
     Dosage: 20 MG
     Route: 048
     Dates: start: 20110101, end: 20110101
  6. PRILOSEC [Concomitant]
  7. VIIBRYD [Suspect]
     Dosage: 40 MG
     Route: 048
     Dates: start: 20110101, end: 20110803

REACTIONS (11)
  - LYMPHADENOPATHY [None]
  - NIGHT SWEATS [None]
  - NERVE INJURY [None]
  - ARTHRALGIA [None]
  - JOINT STIFFNESS [None]
  - DIARRHOEA [None]
  - HEADACHE [None]
  - MUSCLE TWITCHING [None]
  - NERVOUS SYSTEM DISORDER [None]
  - OEDEMA [None]
  - MYALGIA [None]
